FAERS Safety Report 20578523 (Version 12)
Quarter: 2023Q4

REPORT INFORMATION
  Report Type: Spontaneous
  Country: US (occurrence: US)
  Receive Date: 20220310
  Receipt Date: 20231206
  Transmission Date: 20240109
  Serious: Yes (Other)
  Sender: FDA-Public Use
  Company Number: US-PFIZER INC-202200239069

PATIENT
  Age: 81 Year
  Sex: Female

DRUGS (2)
  1. IBRANCE [Suspect]
     Active Substance: PALBOCICLIB
     Indication: Breast cancer female
     Dosage: 125 MG, CYCLIC [1 P.O. Q.(EVERY) DAY 3 WEEKS ON 1 WEEK OFF]
     Route: 048
  2. IBRANCE [Suspect]
     Active Substance: PALBOCICLIB
     Dosage: 100 MG, CYCLIC (1 PO (PER ORAL) DAILY FOR 21 DAYS ON OFF 7 DAYS)
     Route: 048
     Dates: start: 20221201

REACTIONS (17)
  - Upper limb fracture [Recovering/Resolving]
  - Wrist fracture [Unknown]
  - Blood disorder [Unknown]
  - Malaise [Not Recovered/Not Resolved]
  - Sneezing [Not Recovered/Not Resolved]
  - Cough [Not Recovered/Not Resolved]
  - Appetite disorder [Unknown]
  - Weight increased [Unknown]
  - Gait disturbance [Unknown]
  - Arthropathy [Unknown]
  - Memory impairment [Unknown]
  - Hypoacusis [Unknown]
  - Brain fog [Unknown]
  - COVID-19 [Unknown]
  - Nasopharyngitis [Unknown]
  - Confusional state [Unknown]
  - Feeling abnormal [Unknown]

NARRATIVE: CASE EVENT DATE: 20220101
